FAERS Safety Report 4746708-X (Version None)
Quarter: 2005Q3

REPORT INFORMATION
  Report Type: 
  Country: None (occurrence: None)
  Receive Date: 20050817
  Receipt Date: 20050609
  Transmission Date: 20060218
  Serious: Yes (Hospitalization)
  Sender: FDA-Public Use
  Company Number: US-GLAXOSMITHKLINE-A0562009A

PATIENT
  Age: 61 Year
  Sex: Female
  Weight: 58.6 kg

DRUGS (3)
  1. LAMICTAL [Suspect]
     Route: 048
  2. LISINOPRIL [Suspect]
  3. LEXAPRO [Concomitant]

REACTIONS (6)
  - CONVULSION [None]
  - DEPRESSION [None]
  - DISORIENTATION [None]
  - LOSS OF CONSCIOUSNESS [None]
  - OVERDOSE [None]
  - SOMNOLENCE [None]
